FAERS Safety Report 8916170 (Version 1)
Quarter: 2012Q4

REPORT INFORMATION
  Report Type: 
  Country: US (occurrence: US)
  Receive Date: 20121120
  Receipt Date: 20121120
  Transmission Date: 20130627
  Serious: Yes (Death)
  Sender: FDA-Public Use
  Company Number: US-GLAXOSMITHKLINE-A1002258A

PATIENT
  Sex: Female

DRUGS (2)
  1. LOVAZA [Suspect]
     Indication: PRODUCT USED FOR UNKNOWN INDICATION
     Dosage: 4G Unknown
     Route: 048
  2. COUMADIN [Concomitant]

REACTIONS (3)
  - Cerebrovascular accident [Fatal]
  - Bleeding time prolonged [Unknown]
  - International normalised ratio increased [Unknown]
